FAERS Safety Report 14785157 (Version 2)
Quarter: 2019Q2

REPORT INFORMATION
  Report Type: Report from Study
  Country: US (occurrence: US)
  Receive Date: 20180420
  Receipt Date: 20190415
  Transmission Date: 20190711
  Serious: Yes (Hospitalization)
  Sender: FDA-Public Use
  Company Number: US-SA-2018SA110275

PATIENT
  Age: 25 Year
  Sex: Female

DRUGS (1)
  1. ALEMTUZUMAB [Suspect]
     Active Substance: ALEMTUZUMAB
     Indication: MULTIPLE SCLEROSIS
     Dosage: 12 MG QD
     Route: 041
     Dates: start: 20180319, end: 20180323

REACTIONS (3)
  - Haemoptysis [Recovered/Resolved]
  - Heart rate decreased [Recovered/Resolved]
  - Respiratory tract congestion [Recovered/Resolved]
